FAERS Safety Report 6111621-2 (Version None)
Quarter: 2009Q1

REPORT INFORMATION
  Report Type: 
  Country: None (occurrence: None)
  Receive Date: 20090309
  Receipt Date: 20090204
  Transmission Date: 20090719
  Serious: Yes (Other)
  Sender: FDA-Public Use
  Company Number: 1000004934

PATIENT
  Age: 49 Year
  Sex: Female

DRUGS (10)
  1. ESCITALOPRAM [Suspect]
     Dosage: 10 MG (10 MG,  1IN 1 D), ORAL
     Route: 048
     Dates: start: 20080301, end: 20080616
  2. ESCITALOPRAM [Suspect]
     Dosage: 10 MG (10 MG, 1 IN 1D), ORAL
     Route: 048
     Dates: start: 20080801
  3. CO-DAFALGAN [Suspect]
     Dosage: (AS REQUIRED)
     Dates: start: 20080701
  4. CELECOXIB [Suspect]
     Indication: RHEUMATOID ARTHRITIS
     Dosage: 200-400 MG/DAY (1-2 TIMES/DAY)
  5. ESOMEPRAZOLE MAGNESIUM [Suspect]
     Indication: ABDOMINAL PAIN UPPER
     Dosage: (40 MG, AS REQUIRED)
     Dates: end: 20080701
  6. DUSPATALIN RETARD [Suspect]
     Dates: end: 20080701
  7. CHONDROSULF [Suspect]
     Dosage: 800 MG (800 MG, 1 IN 1 D)
  8. HUMIRA [Suspect]
     Indication: RHEUMATOID ARTHRITIS
     Dates: start: 20070301, end: 20080616
  9. ELTROXIN [Concomitant]
  10. ARAVA [Concomitant]

REACTIONS (2)
  - ACUTE GENERALISED EXANTHEMATOUS PUSTULOSIS [None]
  - DERMATITIS BULLOUS [None]
